FAERS Safety Report 25734537 (Version 1)
Quarter: 2025Q3

REPORT INFORMATION
  Report Type: Spontaneous
  Country: CN (occurrence: CN)
  Receive Date: 20250828
  Receipt Date: 20250828
  Transmission Date: 20251021
  Serious: Yes (Hospitalization, Disabling)
  Sender: MACLEODS
  Company Number: CN-MLMSERVICE-20250808-PI608581-00201-1

PATIENT

DRUGS (3)
  1. LIDOCAINE [Suspect]
     Active Substance: LIDOCAINE
     Indication: Epidural anaesthesia
     Route: 008
  2. LIDOCAINE [Suspect]
     Active Substance: LIDOCAINE
     Route: 008
  3. ROPIVACAINE [Suspect]
     Active Substance: ROPIVACAINE
     Indication: Epidural anaesthesia
     Route: 065

REACTIONS (5)
  - Posterior reversible encephalopathy syndrome [Recovered/Resolved]
  - Respiratory distress [Recovered/Resolved]
  - Blindness [Recovered/Resolved]
  - Product administered at inappropriate site [Recovered/Resolved]
  - Maternal exposure during pregnancy [Unknown]
